FAERS Safety Report 8371058-2 (Version None)
Quarter: 2012Q2

REPORT INFORMATION
  Report Type: 
  Country: None (occurrence: None)
  Receive Date: 20120518
  Receipt Date: 20110927
  Transmission Date: 20120825
  Serious: No
  Sender: FDA-Public Use
  Company Number: US-BRISTOL-MYERS SQUIBB COMPANY-15400138

PATIENT
  Age: 26 Year
  Sex: Female
  Weight: 53 kg

DRUGS (3)
  1. IBUPROFEN [Concomitant]
     Dates: start: 20100611
  2. BARACLUDE [Suspect]
     Indication: HEPATITIS B
     Route: 048
     Dates: start: 20090101, end: 20101111
  3. TENOFOVIR DISOPROXIL FUMARATE [Suspect]

REACTIONS (2)
  - NORMAL NEWBORN [None]
  - PREGNANCY [None]
